FAERS Safety Report 5607887-5 (Version None)
Quarter: 2008Q1

REPORT INFORMATION
  Report Type: 
  Country: None (occurrence: None)
  Receive Date: 20080130
  Receipt Date: 20080123
  Transmission Date: 20080703
  Serious: Yes (Other)
  Sender: FDA-Public Use
  Company Number: US-JNJFOC-20080106479

PATIENT
  Sex: Female
  Weight: 70.31 kg

DRUGS (3)
  1. LEVAQUIN [Suspect]
     Indication: KIDNEY INFECTION
     Route: 048
  2. LEVAQUIN [Suspect]
     Indication: URINARY TRACT INFECTION
     Route: 048
  3. PREMPRO [Concomitant]
     Route: 065

REACTIONS (3)
  - HEMIPLEGIA [None]
  - NEURALGIA [None]
  - TENDON PAIN [None]
